FAERS Safety Report 9394569 (Version 1)
Quarter: 2013Q3

REPORT INFORMATION
  Report Type: Spontaneous
  Country: US (occurrence: None)
  Receive Date: 20130709
  Receipt Date: 20130709
  Transmission Date: 20140515
  Serious: No
  Sender: FDA-Public Use
  Company Number: None

PATIENT
  Sex: Female
  Weight: 60.33 kg

DRUGS (2)
  1. FLUOXETINE [Suspect]
     Indication: ANXIETY
     Route: 048
     Dates: start: 2007
  2. FLUOXETINE [Suspect]
     Indication: ANXIETY
     Route: 048
     Dates: start: 2007

REACTIONS (4)
  - Product substitution issue [None]
  - Mood swings [None]
  - Irritability [None]
  - Drug effect decreased [None]
